FAERS Safety Report 9353072 (Version 2)
Quarter: 2013Q3

REPORT INFORMATION
  Report Type: Spontaneous
  Country: DE (occurrence: DE)
  Receive Date: 20130618
  Receipt Date: 20130703
  Transmission Date: 20140515
  Serious: Yes (Congenital Anomaly)
  Sender: FDA-Public Use
  Company Number: DE-RANBAXY-2013RR-70136

PATIENT
  Sex: Female
  Weight: 4 kg

DRUGS (3)
  1. ENALAPRIL [Suspect]
     Indication: MATERNAL EXPOSURE TIMING UNSPECIFIED
     Dosage: 10 MG QD
     Route: 064
  2. IBUPROFEN [Concomitant]
     Indication: MATERNAL EXPOSURE TIMING UNSPECIFIED
     Dosage: UNK
     Route: 064
  3. FUROSEMID [Concomitant]
     Indication: MATERNAL EXPOSURE TIMING UNSPECIFIED
     Dosage: UNK
     Route: 064

REACTIONS (1)
  - Haemangioma [Unknown]
